FAERS Safety Report 4582248-9 (Version None)
Quarter: 2005Q1

REPORT INFORMATION
  Report Type: 
  Country: None (occurrence: None)
  Receive Date: 20050127
  Receipt Date: 20040907
  Transmission Date: 20050727
  Serious: No
  Sender: FDA-Public Use
  Company Number: USA040977480

PATIENT
  Age: 28 Year
  Sex: Female
  Weight: 84 kg

DRUGS (2)
  1. STRATTERA [Suspect]
     Indication: DEPENDENCE
     Dosage: 40 MG/L IN THE MORNING
     Dates: start: 20040902
  2. LEXAPRO [Concomitant]

REACTIONS (1)
  - SOMNOLENCE [None]
